FAERS Safety Report 5191821-9 (Version None)
Quarter: 2006Q4

REPORT INFORMATION
  Report Type: 
  Country: None (occurrence: None)
  Receive Date: 20061220
  Receipt Date: 20061205
  Transmission Date: 20070319
  Serious: Yes (Other)
  Sender: FDA-Public Use
  Company Number: PHEH2006US02090

PATIENT
  Age: 43 Year
  Sex: Female

DRUGS (2)
  1. VISUDYNE [Suspect]
     Indication: HISTOPLASMOSIS
     Dates: start: 20060210, end: 20060210
  2. KENALOG [Suspect]
     Indication: HISTOPLASMOSIS
     Dosage: 4 MG DAILY EY
     Dates: start: 20060210, end: 20060210

REACTIONS (5)
  - RETINAL SCAR [None]
  - VISION BLURRED [None]
  - VISUAL ACUITY REDUCED [None]
  - VISUAL DISTURBANCE [None]
  - VISUAL FIELD DEFECT [None]
